FAERS Safety Report 18431490 (Version 1)
Quarter: 2020Q4

REPORT INFORMATION
  Report Type: Report from Study
  Country: US (occurrence: US)
  Receive Date: 20201027
  Receipt Date: 20201027
  Transmission Date: 20210114
  Serious: Yes (Other)
  Sender: FDA-Public Use
  Company Number: US-PFIZER INC-2020406045

PATIENT

DRUGS (3)
  1. FILGRASTIM [Concomitant]
     Active Substance: FILGRASTIM
     Indication: ENGRAFTMENT SYNDROME
     Dosage: 5 UG/KG, DAILY (ON DAY +5 AND CONTINUING UNTIL NEUTROPHIL ENGRAFTMENT)
  2. SIROLIMUS. [Suspect]
     Active Substance: SIROLIMUS
     Indication: PROPHYLAXIS AGAINST GRAFT VERSUS HOST DISEASE
     Dosage: INITIATED ON DAY +5 POST-TRANSPLANTATION
  3. CYCLOPHOSPHAMIDE. [Concomitant]
     Active Substance: CYCLOPHOSPHAMIDE
     Indication: PROPHYLAXIS AGAINST GRAFT VERSUS HOST DISEASE
     Dosage: 50 MG/KG, DAILY (ON DAYS +3 AND +4)

REACTIONS (1)
  - Venoocclusive liver disease [Recovered/Resolved]
